FAERS Safety Report 6535999-0 (Version None)
Quarter: 2010Q1

REPORT INFORMATION
  Report Type: 
  Country: None (occurrence: None)
  Receive Date: 20100113
  Receipt Date: 20100107
  Transmission Date: 20100710
  Serious: Yes (Life-Threatening)
  Sender: FDA-Public Use
  Company Number: JP-GENENTECH-295502

PATIENT
  Age: 84 Year
  Sex: Male

DRUGS (12)
  1. RITUXAN [Suspect]
     Indication: LYMPHOMA
     Dosage: 375 MG/M2, Q3W
     Route: 042
     Dates: start: 20060901
  2. METHOTREXATE [Concomitant]
     Indication: DRUG USE FOR UNKNOWN INDICATION
  3. CYTARABINE [Concomitant]
     Indication: DRUG USE FOR UNKNOWN INDICATION
  4. UROMITEXAN [Concomitant]
     Indication: DIFFUSE LARGE B-CELL LYMPHOMA
  5. DECADRON [Concomitant]
     Indication: DIFFUSE LARGE B-CELL LYMPHOMA
  6. VEPESID [Concomitant]
     Indication: DIFFUSE LARGE B-CELL LYMPHOMA
  7. PARAPLATIN [Concomitant]
     Indication: DIFFUSE LARGE B-CELL LYMPHOMA
  8. IFOSFAMIDE [Concomitant]
     Indication: DIFFUSE LARGE B-CELL LYMPHOMA
  9. CYCLOPHOSPHAMIDE [Concomitant]
     Indication: DIFFUSE LARGE B-CELL LYMPHOMA
     Dosage: UNK
     Dates: start: 20070701
  10. ADRIACIN [Concomitant]
     Indication: DIFFUSE LARGE B-CELL LYMPHOMA
     Dosage: UNK
     Dates: start: 20070701
  11. ONCOVIN [Concomitant]
     Indication: DIFFUSE LARGE B-CELL LYMPHOMA
     Dosage: UNK
     Dates: start: 20070701
  12. PREDNISOLONE [Concomitant]
     Indication: DIFFUSE LARGE B-CELL LYMPHOMA

REACTIONS (1)
  - MUSCULAR WEAKNESS [None]
